FAERS Safety Report 17864609 (Version 1)
Quarter: 2020Q2

REPORT INFORMATION
  Report Type: Spontaneous
  Country: PR (occurrence: PR)
  Receive Date: 20200605
  Receipt Date: 20200605
  Transmission Date: 20200714
  Serious: No
  Sender: FDA-Public Use
  Company Number: None

PATIENT
  Age: 36 Year
  Sex: Female
  Weight: 69.3 kg

DRUGS (2)
  1. BUPROPION HYDROCHLORIDE SR [Suspect]
     Active Substance: BUPROPION HYDROCHLORIDE
     Indication: DEPRESSION
     Dosage: ?          QUANTITY:30 TABLET(S);?
     Route: 048
     Dates: start: 20200530, end: 20200604
  2. SEDALIA [Concomitant]

REACTIONS (4)
  - Swelling face [None]
  - Pharyngeal swelling [None]
  - Lip swelling [None]
  - Eye swelling [None]

NARRATIVE: CASE EVENT DATE: 20200604
